FAERS Safety Report 11986291 (Version 1)
Quarter: 2016Q1

REPORT INFORMATION
  Report Type: Spontaneous
  Country: ES (occurrence: ES)
  Receive Date: 20160202
  Receipt Date: 20160202
  Transmission Date: 20160526
  Serious: Yes (Hospitalization)
  Sender: FDA-Public Use
  Company Number: ES-ROCHE-1702842

PATIENT
  Age: 74 Year
  Sex: Male
  Weight: 82 kg

DRUGS (5)
  1. SIMVASTATINA [Concomitant]
     Active Substance: SIMVASTATIN
     Indication: HYPERLIPIDAEMIA
     Route: 048
     Dates: start: 20141124
  2. RILAST TURBUHALER [Concomitant]
     Indication: INTERSTITIAL LUNG DISEASE
     Dosage: 160 MICROGRAMOS/4.5 MICROGRAMOS/INHALACION  POLVO PA
     Route: 055
     Dates: start: 20130611
  3. FENOFIBRATO [Concomitant]
     Active Substance: FENOFIBRATE
     Route: 048
     Dates: start: 20151030
  4. ESBRIET [Suspect]
     Active Substance: PIRFENIDONE
     Indication: INTERSTITIAL LUNG DISEASE
     Dosage: 267 MG CAPSULAS DURAS, 63 CAPSULAS
     Route: 048
     Dates: start: 20150129
  5. PREVNAR 13 [Suspect]
     Active Substance: PNEUMOCOCCAL 13-VALENT CONJUGATE VACCINE
     Indication: INTERSTITIAL LUNG DISEASE
     Dosage: 13 SUSPENSION INYECTABLE, 1 JERINGA PRECARGADA DE 0.5 ML + 1
     Route: 030
     Dates: start: 20151123, end: 20151123

REACTIONS (1)
  - Respiratory tract infection [Recovered/Resolved]

NARRATIVE: CASE EVENT DATE: 20151129
